FAERS Safety Report 17832541 (Version 3)
Quarter: 2023Q2

REPORT INFORMATION
  Report Type: Spontaneous
  Country: US (occurrence: US)
  Receive Date: 20200528
  Receipt Date: 20230529
  Transmission Date: 20230722
  Serious: No
  Sender: FDA-Public Use
  Company Number: US-UCBSA-2020001815

PATIENT
  Sex: Female

DRUGS (1)
  1. CIMZIA [Suspect]
     Active Substance: CERTOLIZUMAB PEGOL
     Indication: Crohn^s disease
     Dosage: 800 MILLIGRAM, MONTHLY (QM)
     Route: 058
     Dates: start: 201607

REACTIONS (2)
  - Drug ineffective [Unknown]
  - Off label use [Unknown]
